FAERS Safety Report 24785617 (Version 1)
Quarter: 2024Q4

REPORT INFORMATION
  Report Type: Spontaneous
  Country: US (occurrence: None)
  Receive Date: 20241228
  Receipt Date: 20241228
  Transmission Date: 20250114
  Serious: Yes (Other)
  Sender: Public
  Company Number: None

PATIENT
  Age: 41 Year
  Sex: Female
  Weight: 72.45 kg

DRUGS (1)
  1. AMOXICILLIN [Suspect]
     Active Substance: AMOXICILLIN
     Indication: Pharyngitis streptococcal
     Dosage: OTHER QUANTITY : 1 6.2 ML;?FREQUENCY : TWICE A DAY;?
     Route: 048
     Dates: start: 20241225

REACTIONS (4)
  - Hypoaesthesia [None]
  - Hypoaesthesia oral [None]
  - Hypoaesthesia oral [None]
  - Hypoaesthesia oral [None]

NARRATIVE: CASE EVENT DATE: 20241227
